FAERS Safety Report 20961817 (Version 2)
Quarter: 2022Q3

REPORT INFORMATION
  Report Type: Spontaneous
  Country: ES (occurrence: ES)
  Receive Date: 20220615
  Receipt Date: 20220701
  Transmission Date: 20221027
  Serious: Yes (Other)
  Sender: FDA-Public Use
  Company Number: ES-SA-SAC20220614000091

PATIENT
  Age: 43 Year
  Sex: Male

DRUGS (2)
  1. DUPIXENT [Suspect]
     Active Substance: DUPILUMAB
     Dosage: UNK
  2. DUPIXENT [Suspect]
     Active Substance: DUPILUMAB
     Dosage: 200 MG, Q15D, 200 MG, EVERY 15 DAYS
     Route: 058
     Dates: start: 20220510, end: 20220606

REACTIONS (6)
  - Asphyxia [Unknown]
  - Injection site inflammation [Unknown]
  - Injection site urticaria [Unknown]
  - Cough [Unknown]
  - Chest discomfort [Unknown]
  - Dyspepsia [Unknown]

NARRATIVE: CASE EVENT DATE: 20220606
